FAERS Safety Report 9796938 (Version 1)
Quarter: 2014Q1

REPORT INFORMATION
  Report Type: Spontaneous
  Country: US (occurrence: None)
  Receive Date: 20140102
  Receipt Date: 20140102
  Transmission Date: 20141002
  Serious: Yes (Other)
  Sender: FDA-Public Use
  Company Number: None

PATIENT
  Age: 33 Year
  Sex: Male
  Weight: 107.05 kg

DRUGS (4)
  1. CYMBALTA [Suspect]
     Indication: DEPRESSION
     Route: 048
     Dates: start: 200905, end: 201301
  2. ONGLYZA [Concomitant]
  3. VASOTEC [Concomitant]
  4. TRICOR [Concomitant]

REACTIONS (4)
  - Erectile dysfunction [None]
  - Loss of libido [None]
  - Penile size reduced [None]
  - Depression [None]
